FAERS Safety Report 14385673 (Version 2)
Quarter: 2019Q4

REPORT INFORMATION
  Report Type: Spontaneous
  Country: US (occurrence: US)
  Receive Date: 20180115
  Receipt Date: 20191018
  Transmission Date: 20200122
  Serious: Yes (Other)
  Sender: FDA-Public Use
  Company Number: US-SA-2017SA018839

PATIENT
  Age: 58 Year
  Sex: Female
  Weight: 54.4 kg

DRUGS (6)
  1. LETROZOLE. [Concomitant]
     Active Substance: LETROZOLE
     Dosage: UNK
     Dates: start: 2008
  2. TAXOTERE [Suspect]
     Active Substance: DOCETAXEL
     Indication: BREAST CANCER FEMALE
     Dosage: 118 MG,QCY
     Route: 042
     Dates: start: 20110310, end: 20110310
  3. NEOSAR [Concomitant]
     Active Substance: CYCLOPHOSPHAMIDE
     Indication: BREAST CANCER FEMALE
     Dosage: UNK UNK, Q3W
     Route: 065
     Dates: start: 20110310, end: 20110310
  4. TAXOTERE [Suspect]
     Active Substance: DOCETAXEL
     Dosage: 118 MG,QCY
     Route: 042
     Dates: start: 20110623, end: 20110623
  5. NEOSAR [Concomitant]
     Active Substance: CYCLOPHOSPHAMIDE
     Dosage: UNK UNK, Q3W
     Dates: start: 20110623, end: 20110623
  6. CYTOXAN [Concomitant]
     Active Substance: CYCLOPHOSPHAMIDE
     Indication: BREAST CANCER FEMALE

REACTIONS (5)
  - Alopecia [Recovering/Resolving]
  - Anxiety [Unknown]
  - Impaired quality of life [Unknown]
  - Pain [Unknown]
  - Emotional distress [Unknown]

NARRATIVE: CASE EVENT DATE: 2011
